FAERS Safety Report 21660476 (Version 2)
Quarter: 2023Q1

REPORT INFORMATION
  Report Type: Spontaneous
  Country: CN (occurrence: CN)
  Receive Date: 20221130
  Receipt Date: 20230111
  Transmission Date: 20230417
  Serious: Yes (Other)
  Sender: FDA-Public Use
  Company Number: CN-002147023-NVSC2022CN265089

PATIENT
  Sex: Female

DRUGS (3)
  1. LESCOL [Suspect]
     Active Substance: FLUVASTATIN SODIUM
     Indication: Product used for unknown indication
     Dosage: 40 MG
     Route: 065
  2. LESCOL XL [Suspect]
     Active Substance: FLUVASTATIN SODIUM
     Indication: Product used for unknown indication
     Dosage: 1 DOSAGE FORM
     Route: 048
  3. LESCOL XL [Suspect]
     Active Substance: FLUVASTATIN SODIUM
     Dosage: 0.5 DOSAGE FORM
     Route: 048

REACTIONS (8)
  - Starvation [Unknown]
  - Back pain [Unknown]
  - Discomfort [Unknown]
  - Dizziness [Unknown]
  - Somnolence [Unknown]
  - Dysgeusia [Unknown]
  - Wrong technique in product usage process [Unknown]
  - Counterfeit product administered [Unknown]
